FAERS Safety Report 17992120 (Version 1)
Quarter: 2020Q3

REPORT INFORMATION
  Report Type: Spontaneous
  Country: SG (occurrence: SG)
  Receive Date: 20200707
  Receipt Date: 20200707
  Transmission Date: 20201103
  Serious: Yes (Hospitalization)
  Sender: FDA-Public Use
  Company Number: SG-B.I. PHARMACEUTICALS,INC./RIDGEFIELD-2020-BI-033060

PATIENT
  Age: 80 Year
  Sex: Female

DRUGS (6)
  1. COLCHICINE. [Suspect]
     Active Substance: COLCHICINE
     Indication: GOUT
     Route: 048
  2. OMEPRAZOLE. [Suspect]
     Active Substance: OMEPRAZOLE
     Indication: PRODUCT USED FOR UNKNOWN INDICATION
     Route: 048
  3. ALLOPURINOL. [Concomitant]
     Active Substance: ALLOPURINOL
     Indication: PRODUCT USED FOR UNKNOWN INDICATION
     Route: 048
  4. CLOPIDOGREL [Concomitant]
     Active Substance: CLOPIDOGREL BISULFATE
     Indication: PRODUCT USED FOR UNKNOWN INDICATION
     Route: 048
  5. MICARDIS [Suspect]
     Active Substance: TELMISARTAN
     Indication: HYPERTENSION
     Route: 048
  6. COLCHICINE. [Suspect]
     Active Substance: COLCHICINE
     Route: 048

REACTIONS (13)
  - Fall [Recovered/Resolved]
  - General physical health deterioration [Recovered/Resolved]
  - Dysstasia [Recovered/Resolved]
  - Muscular weakness [Recovered/Resolved]
  - Myotonia [Recovered/Resolved]
  - Overdose [Recovered/Resolved]
  - Transaminases increased [Recovered/Resolved]
  - Product prescribing error [Recovered/Resolved]
  - Vomiting [Recovered/Resolved]
  - Drug interaction [Recovered/Resolved]
  - Diarrhoea [Recovered/Resolved]
  - Myopathy toxic [Recovered/Resolved]
  - Toxicity to various agents [Recovered/Resolved]
